FAERS Safety Report 9206352 (Version 1)
Quarter: 2013Q2

REPORT INFORMATION
  Report Type: Spontaneous
  Country: US (occurrence: None)
  Receive Date: 20130401
  Receipt Date: 20130401
  Transmission Date: 20140414
  Serious: Yes (Other)
  Sender: FDA-Public Use
  Company Number: None

PATIENT
  Age: 37 Year
  Sex: Female

DRUGS (1)
  1. MAKENA [Suspect]
     Indication: PREMATURE LABOUR
     Route: 030
     Dates: start: 20130325

REACTIONS (3)
  - Dysuria [None]
  - Headache [None]
  - Documented hypersensitivity to administered drug [None]
